FAERS Safety Report 4544419-7 (Version None)
Quarter: 2005Q1

REPORT INFORMATION
  Report Type: 
  Country: None (occurrence: None)
  Receive Date: 20050105
  Receipt Date: 20041227
  Transmission Date: 20050727
  Serious: Yes (Hospitalization)
  Sender: FDA-Public Use
  Company Number: US-JNJFOC-20041207121

PATIENT
  Sex: Male
  Weight: 65.32 kg

DRUGS (2)
  1. REMICADE [Suspect]
     Indication: CROHN'S DISEASE
     Route: 042
  2. 6 MP [Concomitant]
     Indication: CROHN'S DISEASE

REACTIONS (1)
  - HISTOPLASMOSIS [None]
